FAERS Safety Report 9479236 (Version 1)
Quarter: 2013Q3

REPORT INFORMATION
  Report Type: Spontaneous
  Country: AR (occurrence: AR)
  Receive Date: 20130827
  Receipt Date: 20130827
  Transmission Date: 20140515
  Serious: Yes (Other)
  Sender: FDA-Public Use
  Company Number: AR-ABBOTT-13P-007-1138058-00

PATIENT
  Sex: Female

DRUGS (1)
  1. HUMIRA [Suspect]
     Indication: PSORIATIC ARTHROPATHY
     Route: 058
     Dates: start: 20070301

REACTIONS (3)
  - Maculopathy [Recovering/Resolving]
  - Cataract [Recovering/Resolving]
  - Headache [Recovering/Resolving]
